FAERS Safety Report 8838825 (Version 1)
Quarter: 2012Q4

REPORT INFORMATION
  Report Type: 
  Country: GB (occurrence: GB)
  Receive Date: 20121014
  Receipt Date: 20121014
  Transmission Date: 20130627
  Serious: Yes (Disabling)
  Sender: FDA-Public Use
  Company Number: GB-TEVA-363151ISR

PATIENT
  Age: 80 Year
  Sex: Male

DRUGS (1)
  1. CITALOPRAM [Suspect]
     Indication: DEPRESSION
     Route: 048
     Dates: start: 20120911, end: 20120917

REACTIONS (4)
  - Urinary incontinence [Recovering/Resolving]
  - Faecal incontinence [Recovering/Resolving]
  - Delirium [Recovering/Resolving]
  - Mobility decreased [Recovering/Resolving]
